FAERS Safety Report 22874551 (Version 3)
Quarter: 2024Q4

REPORT INFORMATION
  Report Type: Spontaneous
  Country: JP (occurrence: JP)
  Receive Date: 20230828
  Receipt Date: 20241008
  Transmission Date: 20250115
  Serious: Yes (Other)
  Sender: BRISTOL MYERS SQUIBB
  Company Number: JP-BRISTOL-MYERS SQUIBB COMPANY-2023-120519

PATIENT
  Age: 72 Year
  Sex: Male

DRUGS (2)
  1. SOTYKTU [Suspect]
     Active Substance: DEUCRAVACITINIB
     Indication: Psoriasis
     Route: 048
     Dates: start: 20230308
  2. SOTYKTU [Suspect]
     Active Substance: DEUCRAVACITINIB
     Route: 048

REACTIONS (2)
  - Bell^s palsy [Recovered/Resolved]
  - Off label use [Unknown]

NARRATIVE: CASE EVENT DATE: 20230308
